FAERS Safety Report 14654777 (Version 3)
Quarter: 2018Q3

REPORT INFORMATION
  Report Type: Spontaneous
  Country: IT (occurrence: IT)
  Receive Date: 20180319
  Receipt Date: 20180704
  Transmission Date: 20181010
  Serious: Yes (Hospitalization)
  Sender: FDA-Public Use
  Company Number: IT-ROCHE-2089109

PATIENT
  Age: 67 Year
  Sex: Female
  Weight: 65 kg

DRUGS (3)
  1. FLUOROURACIL AHCL [Concomitant]
     Active Substance: FLUOROURACIL
     Indication: GASTRIC NEOPLASM
     Dosage: FORM STRENGTH: 50 MG/ML
     Route: 042
     Dates: start: 20180212
  2. HERCEPTIN [Suspect]
     Active Substance: TRASTUZUMAB
     Indication: GASTRIC NEOPLASM
     Route: 042
     Dates: start: 20180212, end: 20180327
  3. CISPLATINO [Concomitant]
     Active Substance: CISPLATIN
     Indication: GASTRIC NEOPLASM
     Dosage: FORM STRENGTH: 1 MG/ML
     Route: 042
     Dates: start: 20180212

REACTIONS (1)
  - Tremor [Recovered/Resolved]

NARRATIVE: CASE EVENT DATE: 20180212
